FAERS Safety Report 24297711 (Version 1)
Quarter: 2024Q3

REPORT INFORMATION
  Report Type: Spontaneous
  Country: ES (occurrence: ES)
  Receive Date: 20240909
  Receipt Date: 20240909
  Transmission Date: 20241017
  Serious: Yes (Other)
  Sender: MYLAN
  Company Number: ES-TEVA-VS-3226277

PATIENT
  Age: 36 Year
  Sex: Female
  Weight: 83.3 kg

DRUGS (15)
  1. EBASTINE [Interacting]
     Active Substance: EBASTINE
     Indication: Product used for unknown indication
     Dosage: 20 MILLIGRAM, QD (20 TABLETS 1 TABLET/24 H)
     Route: 048
  2. ZOLPIDEM [Suspect]
     Active Substance: ZOLPIDEM TARTRATE
     Indication: Product used for unknown indication
     Dosage: 10 MILLIGRAM, QD (10 MG 30 TABLETS/1 C/24 H 0 - 0 - 0 - 1)
     Route: 048
  3. FENTANYL [Interacting]
     Active Substance: FENTANYL\FENTANYL CITRATE
     Indication: Product used for unknown indication
     Dosage: 1 DOSAGE FORM, QD (200 MCG 30 TABLETS SUCK/1 TABLET/24 H)
     Route: 048
  4. FENTANYL [Interacting]
     Active Substance: FENTANYL\FENTANYL CITRATE
     Indication: Product used for unknown indication
     Dosage: 1 DOSAGE FORM, (133 MCG 30 COMP SUBLIN/1 TABLET/24 H)
     Route: 048
  5. HYDROMORPHONE [Interacting]
     Active Substance: HYDROMORPHONE
     Indication: Product used for unknown indication
     Dosage: 2 DOSAGE FORM, QD (8 MG 56 TABLETS/2 COMP/24 H/0 - 0 - 0 - 2)
     Route: 048
     Dates: end: 202103
  6. PREGABALIN [Interacting]
     Active Substance: PREGABALIN
     Indication: Product used for unknown indication
     Dosage: 2 DOSAGE FORM, QD (75 MG 56 TABLETS/2 C/24 H/0 - 0 - 2 - 0)
     Route: 048
  7. TERBUTALINE [Interacting]
     Active Substance: TERBUTALINE
     Indication: Product used for unknown indication
     Dosage: 500 MICROGRAM, QD (500 MCG/INH /1 INH/24 H)
     Route: 055
  8. FLUTICASONE [Concomitant]
     Active Substance: FLUTICASONE
     Indication: Product used for unknown indication
     Dosage: 2 DOSAGE FORM, QD (27.5 MCG/PULV/2 PCS/24 H)
     Route: 065
  9. LEVOTHYROXINE [Concomitant]
     Active Substance: LEVOTHYROXINE\LEVOTHYROXINE SODIUM
     Indication: Product used for unknown indication
     Dosage: 1 DOSAGE FORM, QD (75 MCG 100 TABLETS/1 TABLET/24 H/1 - 0 - 0 - 0)
     Route: 048
  10. EPINEPHRINE [Concomitant]
     Active Substance: EPINEPHRINE
     Indication: Product used for unknown indication
     Dosage: 300 MICROGRAM (INY)
     Route: 065
  11. CALCIFEDIOL [Concomitant]
     Active Substance: CALCIFEDIOL
     Indication: Product used for unknown indication
     Dosage: 1 DOSAGE FORM, MONTHLY (0.266 MG 10 CAPS/1 CAP/30 DAYS)
     Route: 048
  12. THIAMINE [Concomitant]
     Active Substance: THIAMINE
     Indication: Product used for unknown indication
     Dosage: 1 DOSAGE FORM, QW (300 MG 20 TABLETS/1 COMP/7 DAYS/1 - 0 - 0 - 0)
     Route: 048
  13. CYANOCOBALAMIN [Concomitant]
     Active Substance: CYANOCOBALAMIN
     Indication: Product used for unknown indication
     Dosage: 1000 MICROGRAM (1000 MCG 8 AMP/1 AMP/0 DAYS)
     Route: 065
  14. ELETRIPTAN [Concomitant]
     Active Substance: ELETRIPTAN
     Indication: Product used for unknown indication
     Dosage: 1 DOSAGE FORM, QD (40 MG 4 TABLETS /1 TABLET/24 H)
     Route: 048
  15. ACETAMINOPHEN [Concomitant]
     Active Substance: ACETAMINOPHEN
     Indication: Product used for unknown indication
     Dosage: 1 DOSAGE FORM, QD (1 G 40 COMP/1 TABLET/12 H)
     Route: 048

REACTIONS (3)
  - Cardiotoxicity [Unknown]
  - Sedation [Unknown]
  - Drug interaction [Unknown]
